FAERS Safety Report 23185325 (Version 2)
Quarter: 2023Q4

REPORT INFORMATION
  Report Type: Report from Study
  Country: US (occurrence: US)
  Receive Date: 20231115
  Receipt Date: 20231205
  Transmission Date: 20240110
  Serious: Yes (Death)
  Sender: FDA-Public Use
  Company Number: US-INSMED, INC.-2023-03657-US

PATIENT
  Age: 79 Year
  Sex: Female

DRUGS (1)
  1. ARIKAYCE [Suspect]
     Active Substance: AMIKACIN
     Indication: Mycobacterial infection
     Dosage: 590 MILLIGRAM, QD
     Route: 055
     Dates: start: 20230120

REACTIONS (4)
  - Death [Fatal]
  - Incorrect dose administered by device [Unknown]
  - Drug dose omission by device [Unknown]
  - Device information output issue [Unknown]

NARRATIVE: CASE EVENT DATE: 20231001
